FAERS Safety Report 6565992-3 (Version None)
Quarter: 2010Q1

REPORT INFORMATION
  Report Type: 
  Country: None (occurrence: None)
  Receive Date: 20100129
  Receipt Date: 20100129
  Transmission Date: 20100710
  Serious: Yes (Hospitalization)
  Sender: FDA-Public Use
  Company Number: None

PATIENT
  Age: 57 Year
  Sex: Male
  Weight: 70.2622 kg

DRUGS (2)
  1. TARCEVA [Suspect]
     Indication: RECTAL CANCER METASTATIC
     Dosage: 150MG, D, ORAL
     Route: 048
     Dates: start: 20090105
  2. RAD001 [Suspect]
     Indication: RECTAL CANCER METASTATIC
     Dosage: 5MG, QOD, ORAL (DOSE MOD)
     Route: 048
     Dates: start: 20091109

REACTIONS (7)
  - BLOOD ALKALINE PHOSPHATASE INCREASED [None]
  - HYPONATRAEMIA [None]
  - MALIGNANT NEOPLASM PROGRESSION [None]
  - NEUROENDOCRINE TUMOUR [None]
  - PYREXIA [None]
  - THROMBOCYTOPENIA [None]
  - TUMOUR NECROSIS [None]
